FAERS Safety Report 4461864-9 (Version None)
Quarter: 2004Q3

REPORT INFORMATION
  Report Type: 
  Country: None (occurrence: None)
  Receive Date: 20040929
  Receipt Date: 20031105
  Transmission Date: 20050211
  Serious: No
  Sender: FDA-Public Use
  Company Number: US-GLAXOSMITHKLINE-A0433129A

PATIENT
  Age: 54 Year
  Sex: Female

DRUGS (3)
  1. SEREVENT [Suspect]
     Indication: ASTHMA
     Dosage: 1PUFF TWICE PER DAY
     Route: 055
     Dates: end: 20020101
  2. ADVAIR DISKUS 100/50 [Suspect]
     Indication: ASTHMA
     Dosage: 1PUFF TWICE PER DAY
     Route: 055
     Dates: start: 20020101, end: 20030101
  3. AZMACORT [Concomitant]
     Dates: end: 20020101

REACTIONS (4)
  - COUGH [None]
  - DYSPNOEA EXACERBATED [None]
  - PNEUMONIA [None]
  - PULMONARY FUNCTION TEST DECREASED [None]
